FAERS Safety Report 4268685-0 (Version None)
Quarter: 2004Q1

REPORT INFORMATION
  Report Type: 
  Country: None (occurrence: None)
  Receive Date: 20040108
  Receipt Date: 20031218
  Transmission Date: 20041129
  Serious: Yes (Hospitalization)
  Sender: FDA-Public Use
  Company Number: F01200301505

PATIENT
  Age: 71 Year
  Sex: Male

DRUGS (7)
  1. (OXALIPLATIN) - SOLUTION - 260 MG [Suspect]
     Indication: COLORECTAL CANCER METASTATIC
     Dosage: 260 MG Q3W
     Route: 042
     Dates: start: 20030811
  2. (CAPECITABINE) - TABLET - 1000 MG/M2 [Suspect]
     Dosage: 1000 MG/M2 TWICE A DAY FROM D1 TO D14, Q3W
     Route: 048
     Dates: start: 20030811, end: 20031210
  3. AMBIEN [Concomitant]
  4. ATENOLOL [Concomitant]
  5. ZOCOR [Concomitant]
  6. ACETYLSALICYLIC ACID SRT [Concomitant]
  7. LOMOTIL ( (ATROPINE SULFATE=DIPHENOR HYDROCHLORIDE) [Concomitant]

REACTIONS (3)
  - ENTERITIS [None]
  - POST PROCEDURAL DIARRHOEA [None]
  - PYREXIA [None]
